FAERS Safety Report 5086541-5 (Version None)
Quarter: 2006Q3

REPORT INFORMATION
  Report Type: 
  Country: None (occurrence: None)
  Receive Date: 20060703
  Receipt Date: 20051004
  Transmission Date: 20061208
  Serious: No
  Sender: FDA-Public Use
  Company Number: 2005S1009776

PATIENT
  Age: 35 Year
  Sex: Male

DRUGS (3)
  1. CLOZAPINE [Suspect]
     Indication: SCHIZOPHRENIA, PARANOID TYPE
     Dosage: 150 MG; QAM; PO, SEE IMAGE
     Route: 048
     Dates: start: 20041201
  2. LORAZEPAM [Concomitant]
  3. ESCITALOPRAM [Concomitant]

REACTIONS (1)
  - GRANULOCYTOPENIA [None]
